FAERS Safety Report 13177538 (Version 1)
Quarter: 2017Q1

REPORT INFORMATION
  Report Type: Report from Study
  Country: US (occurrence: US)
  Receive Date: 20170201
  Receipt Date: 20170201
  Transmission Date: 20170428
  Serious: No
  Sender: FDA-Public Use
  Company Number: US-EXELIXIS-CABO-16006443

PATIENT
  Sex: Male

DRUGS (15)
  1. COMETRIQ [Suspect]
     Active Substance: CABOZANTINIB S-MALATE
     Indication: PRODUCT USED FOR UNKNOWN INDICATION
     Dosage: 60 MG, QD
     Route: 048
     Dates: start: 20160317
  2. ASPIRIN. [Concomitant]
     Active Substance: ASPIRIN
  3. CELEXA [Concomitant]
     Active Substance: CITALOPRAM HYDROBROMIDE
  4. DOXYCYCLINE. [Concomitant]
     Active Substance: DOXYCYCLINE
  5. TYLENOL [Concomitant]
     Active Substance: ACETAMINOPHEN
  6. LASIX [Concomitant]
     Active Substance: FUROSEMIDE
  7. RISPERDAL [Concomitant]
     Active Substance: RISPERIDONE
  8. ROPINIROLE. [Concomitant]
     Active Substance: ROPINIROLE
  9. TRAZODONE [Concomitant]
     Active Substance: TRAZODONE HYDROCHLORIDE
  10. MVI [Concomitant]
     Active Substance: VITAMINS
  11. BENADRYL [Concomitant]
     Active Substance: DIPHENHYDRAMINE HYDROCHLORIDE
  12. ATIVAN [Concomitant]
     Active Substance: LORAZEPAM
  13. SYNTHROID [Concomitant]
     Active Substance: LEVOTHYROXINE SODIUM
  14. KCL [Concomitant]
     Active Substance: POTASSIUM CHLORIDE
  15. MORPHINE [Concomitant]
     Active Substance: MORPHINE

REACTIONS (13)
  - Weight decreased [Unknown]
  - Palmar-plantar erythrodysaesthesia syndrome [Recovered/Resolved]
  - Nausea [Unknown]
  - Peripheral swelling [Not Recovered/Not Resolved]
  - Blood iron decreased [Unknown]
  - Contusion [Unknown]
  - Diarrhoea [Unknown]
  - Fungal skin infection [Not Recovered/Not Resolved]
  - Infected cyst [Unknown]
  - Fatigue [Unknown]
  - Asthenia [Unknown]
  - Feeling cold [Unknown]
  - Depression [Unknown]
